FAERS Safety Report 6648447-7 (Version None)
Quarter: 2010Q1

REPORT INFORMATION
  Report Type: 
  Country: None (occurrence: None)
  Receive Date: 20100324
  Receipt Date: 20100324
  Transmission Date: 20100710
  Serious: No
  Sender: FDA-Public Use
  Company Number: GB-ROCHE-448295

PATIENT
  Sex: Female
  Weight: 50 kg

DRUGS (1)
  1. TAMIFLU [Suspect]
     Indication: DRUG USE FOR UNKNOWN INDICATION
     Dosage: SINGLE TABLET.
     Route: 048
     Dates: start: 20060512, end: 20060512

REACTIONS (2)
  - NO ADVERSE EVENT [None]
  - PREGNANCY [None]
